FAERS Safety Report 13167898 (Version 3)
Quarter: 2017Q1

REPORT INFORMATION
  Report Type: Report from Study
  Country: US (occurrence: US)
  Receive Date: 20170131
  Receipt Date: 20170309
  Transmission Date: 20170428
  Serious: Yes (Hospitalization, Other)
  Sender: FDA-Public Use
  Company Number: US-ALEXION-A201700755

PATIENT
  Age: 26 Year
  Sex: Male

DRUGS (1)
  1. SOLIRIS [Suspect]
     Active Substance: ECULIZUMAB
     Indication: HAEMOLYTIC URAEMIC SYNDROME
     Dosage: 1200 MG, Q2W
     Route: 042

REACTIONS (10)
  - Cholelithiasis [Recovered/Resolved]
  - Cholestasis [Recovered/Resolved]
  - Dyspnoea [Unknown]
  - Platelet count decreased [Recovered/Resolved]
  - Acute respiratory distress syndrome [Unknown]
  - Thrombocytopenia [Unknown]
  - Hypoxia [Unknown]
  - Cholecystitis acute [Recovered/Resolved]
  - Abdominal pain [Not Recovered/Not Resolved]
  - Rash [Unknown]

NARRATIVE: CASE EVENT DATE: 201701
